FAERS Safety Report 23754139 (Version 1)
Quarter: 2024Q2

REPORT INFORMATION
  Report Type: Report from Study
  Country: US (occurrence: US)
  Receive Date: 20240417
  Receipt Date: 20240417
  Transmission Date: 20240716
  Serious: Yes (Hospitalization)
  Sender: FDA-Public Use
  Company Number: US-ABBVIE-5629053

PATIENT
  Age: 57 Year
  Sex: Male

DRUGS (1)
  1. VENCLEXTA [Suspect]
     Active Substance: VENETOCLAX
     Indication: Plasma cell myeloma
     Dosage: TIME INTERVAL: 0.125 DAYS
     Route: 048
     Dates: start: 202312

REACTIONS (1)
  - Lymphocyte adoptive therapy [Unknown]

NARRATIVE: CASE EVENT DATE: 20240301
